FAERS Safety Report 9931491 (Version 1)
Quarter: 2014Q1

REPORT INFORMATION
  Report Type: Spontaneous
  Country: US (occurrence: US)
  Receive Date: 20140228
  Receipt Date: 20140228
  Transmission Date: 20141002
  Serious: No
  Sender: FDA-Public Use
  Company Number: US-009507513-1402USA010915

PATIENT
  Sex: Male

DRUGS (3)
  1. TEMODAR [Suspect]
     Indication: NEOPLASM
     Dosage: FIRST DOSE OF 400MG
     Route: 048
     Dates: start: 20140217
  2. TEMODAR [Suspect]
     Dosage: DOSAGE WAS DIALED DOWN TO 200MG
     Route: 048
     Dates: start: 20140219
  3. XELODA [Concomitant]

REACTIONS (6)
  - Haemoglobin abnormal [Unknown]
  - Dehydration [Unknown]
  - White blood cell count increased [Unknown]
  - Vomiting [Unknown]
  - Vomiting [Unknown]
  - Restless legs syndrome [Unknown]
